FAERS Safety Report 10965060 (Version 2)
Quarter: 2015Q3

REPORT INFORMATION
  Report Type: Report from Study
  Country: JP (occurrence: None)
  Receive Date: 20150326
  Receipt Date: 20150706
  Transmission Date: 20151125
  Serious: Yes (Hospitalization, Other)
  Sender: FDA-Public Use
  Company Number: A201309798

PATIENT
  Sex: Male

DRUGS (19)
  1. FLUCONAZOLE (FLUCONAZOLE) [Suspect]
     Active Substance: FLUCONAZOLE
     Indication: DISSEMINATED CRYPTOCOCCOSIS
     Dates: start: 20120229, end: 20130401
  2. SAMTIREL (ATOVAQUONE) [Suspect]
     Active Substance: ATOVAQUONE
     Indication: ANTIFUNGAL PROPHYLAXIS
     Route: 048
     Dates: start: 20120523, end: 20140528
  3. NORVIR [Suspect]
     Active Substance: RITONAVIR
     Indication: HIV INFECTION
     Route: 048
     Dates: start: 20110824, end: 20130405
  4. PREZISTANAIVE (DARUNAVIR ETHANOLATE) TABLET [Suspect]
     Active Substance: DARUNAVIR
     Indication: HIV INFECTION
     Route: 048
     Dates: start: 20110824, end: 20130405
  5. ANCOTIL (FLUCYTOSINE) TABLET [Suspect]
     Active Substance: FLUCYTOSINE
     Indication: DISSEMINATED CRYPTOCOCCOSIS
     Route: 048
     Dates: start: 20110222, end: 20120618
  6. ISENTRESS [Concomitant]
     Active Substance: RALTEGRAVIR POTASSIUM
  7. MICARDIS [Concomitant]
     Active Substance: TELMISARTAN
  8. ATOVAQUONE (ATOVAQUONE) [Concomitant]
  9. FAMOTIDINE D (FAMOTIDINE) [Concomitant]
  10. ABACAVIR SULFATE + LAMIVUDINE [Suspect]
     Active Substance: ABACAVIR SULFATE\LAMIVUDINE
     Indication: HIV INFECTION
     Route: 048
     Dates: start: 20110309
  11. ZITHROMAC (AZITHROMYCIN) [Concomitant]
  12. VFEND [Concomitant]
     Active Substance: VORICONAZOLE
  13. REBAMIPIDE (REBAMIPIDE) [Concomitant]
  14. AMBISOME [Suspect]
     Active Substance: AMPHOTERICIN B
     Indication: DISSEMINATED CRYPTOCOCCOSIS
     Route: 041
     Dates: start: 20110304, end: 20131127
  15. EDURANT [Concomitant]
     Active Substance: RILPIVIRINE HYDROCHLORIDE
  16. AMLODIPINE OD (AMLODIPINE BESILATE) [Concomitant]
  17. TAKEPRON (LANSOPRAZOLE) [Concomitant]
     Active Substance: LANSOPRAZOLE
  18. NU-LOTAN (LOSARTAN POTASSIUM) [Concomitant]
  19. MARAVIROC (MARAVIROC) TABLET [Suspect]
     Active Substance: MARAVIROC
     Indication: HIV INFECTION
     Route: 048
     Dates: start: 20130412, end: 20131127

REACTIONS (17)
  - Epilepsy [None]
  - Ulcer haemorrhage [None]
  - Hyperlipidaemia [None]
  - Blindness [None]
  - Headache [None]
  - Gamma-glutamyltransferase increased [None]
  - Renal impairment [None]
  - Visual acuity reduced [None]
  - Colitis ulcerative [None]
  - Pneumocystis jirovecii pneumonia [None]
  - Blood alkaline phosphatase increased [None]
  - Pancreatitis acute [None]
  - Meningitis cryptococcal [None]
  - Insomnia [None]
  - Immune reconstitution inflammatory syndrome [None]
  - Cytomegalovirus enterocolitis [None]
  - Blood creatinine increased [None]

NARRATIVE: CASE EVENT DATE: 20130606
